FAERS Safety Report 7951800-2 (Version None)
Quarter: 2011Q4

REPORT INFORMATION
  Report Type: 
  Country: None (occurrence: None)
  Receive Date: 20111130
  Receipt Date: 20111130
  Transmission Date: 20120403
  Serious: Yes (Hospitalization)
  Sender: FDA-Public Use
  Company Number: None

PATIENT
  Sex: Female
  Weight: 63.5 kg

DRUGS (2)
  1. TAXOL [Suspect]
     Dosage: 221 MG
  2. CARBOPLATIN [Suspect]
     Dosage: 531 MG

REACTIONS (1)
  - FEBRILE NEUTROPENIA [None]
